FAERS Safety Report 11230678 (Version 1)
Quarter: 2015Q3

REPORT INFORMATION
  Report Type: Spontaneous
  Country: US (occurrence: US)
  Receive Date: 20150701
  Receipt Date: 20150701
  Transmission Date: 20151125
  Serious: No
  Sender: FDA-Public Use
  Company Number: US-PFIZER INC-2015215008

PATIENT
  Age: 68 Year
  Sex: Female
  Weight: 81.63 kg

DRUGS (3)
  1. ESTRING [Suspect]
     Active Substance: ESTRADIOL
     Indication: CYSTITIS
  2. ESTRING [Suspect]
     Active Substance: ESTRADIOL
     Indication: URINARY TRACT INFECTION
  3. ESTRING [Suspect]
     Active Substance: ESTRADIOL
     Indication: VULVOVAGINAL DRYNESS
     Dosage: UNK
     Dates: start: 20150617, end: 20150623

REACTIONS (7)
  - Vaginal discharge [Recovering/Resolving]
  - Drug ineffective [Unknown]
  - Abdominal pain lower [Recovering/Resolving]
  - Vaginal odour [Recovering/Resolving]
  - Vulvovaginal discomfort [Recovering/Resolving]
  - Malaise [Recovering/Resolving]
  - Vulvovaginal pain [Recovering/Resolving]

NARRATIVE: CASE EVENT DATE: 201506
